FAERS Safety Report 8564838-1 (Version None)
Quarter: 2012Q3

REPORT INFORMATION
  Report Type: 
  Country: None (occurrence: None)
  Receive Date: 20120803
  Receipt Date: 20120725
  Transmission Date: 20120928
  Serious: Yes (Hospitalization)
  Sender: FDA-Public Use
  Company Number: US-ELI_LILLY_AND_COMPANY-US201103002768

PATIENT
  Sex: Female

DRUGS (21)
  1. HUMALOG [Suspect]
     Indication: DIABETES MELLITUS
  2. PROCRIT [Concomitant]
     Dosage: UNK, OTHER
  3. CRANBERRY [Concomitant]
  4. IRON [Concomitant]
  5. FORTEO [Suspect]
     Dosage: 20 UG, QD
     Route: 058
  6. CELLCEPT [Concomitant]
     Dosage: 1 G, BID
  7. PRAVACHOL [Concomitant]
  8. LOPRESSOR [Concomitant]
  9. HUMAN INSULIN [Suspect]
     Indication: DIABETES MELLITUS
  10. PROGRAF [Concomitant]
  11. ACYCLOVIR [Concomitant]
  12. FISH OIL [Concomitant]
  13. NEURONTIN [Concomitant]
  14. FORTEO [Suspect]
     Indication: OSTEOPOROSIS
     Dosage: 20 UG, DAILY (1/D)
     Route: 058
     Dates: start: 20101001
  15. FORTEO [Suspect]
     Dosage: 20 UG, QD
     Route: 058
  16. PREDNISONE [Concomitant]
     Dosage: 2.5 MG, UNK
  17. FORTEO [Suspect]
     Dosage: 20 UG, QD
     Route: 058
  18. MULTI-VITAMIN [Concomitant]
  19. TRENTAL [Concomitant]
  20. TORSEMIDE [Concomitant]
  21. EYE DROPS [Concomitant]

REACTIONS (6)
  - INFECTION [None]
  - WRIST FRACTURE [None]
  - DIABETIC KETOACIDOSIS [None]
  - MUSCULOSKELETAL STIFFNESS [None]
  - CARPAL TUNNEL SYNDROME [None]
  - ARTHRALGIA [None]
